FAERS Safety Report 11851951 (Version 2)
Quarter: 2015Q4

REPORT INFORMATION
  Report Type: Report from Study
  Country: KR (occurrence: KR)
  Receive Date: 20151218
  Receipt Date: 20151229
  Transmission Date: 20160305
  Serious: Yes (Hospitalization)
  Sender: FDA-Public Use
  Company Number: KR-TEVA-618155ISR

PATIENT
  Age: 28 Year
  Sex: Female
  Weight: 65.8 kg

DRUGS (29)
  1. DEXAMETHASONE. [Concomitant]
     Active Substance: DEXAMETHASONE
     Indication: PREMEDICATION
     Dosage: WITH PACLITAXEL AND AC CHEMOTHERAPY
     Route: 040
     Dates: start: 20150707
  2. LANSTON [Concomitant]
     Active Substance: LANSOPRAZOLE
     Indication: GASTRITIS PROPHYLAXIS
     Dosage: 15 MILLIGRAM DAILY;
     Route: 048
     Dates: start: 20150728, end: 20150826
  3. TACENOL ER [Concomitant]
     Dosage: 1950 MILLIGRAM DAILY;
     Route: 048
     Dates: start: 20151023, end: 20151027
  4. GADIN [Concomitant]
     Indication: PREMEDICATION
     Dosage: WITH PACLITAXEL AND AC CHEMOTHERAPY
     Route: 040
     Dates: start: 20150707
  5. LANSTON [Concomitant]
     Active Substance: LANSOPRAZOLE
     Indication: TONSILLITIS
     Dosage: 15 MILLIGRAM DAILY;
     Route: 048
     Dates: start: 20151023, end: 20151027
  6. URSA [Concomitant]
     Indication: ALANINE AMINOTRANSFERASE INCREASED
     Dosage: 300 MILLIGRAM DAILY;
     Route: 048
     Dates: start: 20151002
  7. TACENOL ER [Concomitant]
     Indication: TONSILLITIS
     Dosage: 1300 MG, ONCE
     Route: 048
     Dates: start: 20151020, end: 20151020
  8. AMIRAL [Concomitant]
     Indication: TONSILLITIS
     Dosage: 500 ML DAILY;
     Route: 041
     Dates: start: 20151021, end: 20151021
  9. TRAMADOL. [Concomitant]
     Active Substance: TRAMADOL
     Indication: TONSILLITIS
     Dosage: 50 MILLIGRAM DAILY;
     Route: 040
     Dates: start: 20151022, end: 20151022
  10. LEGALON [Concomitant]
     Active Substance: MILK THISTLE
     Indication: ALANINE AMINOTRANSFERASE INCREASED
     Dosage: 420 MILLIGRAM DAILY;
     Route: 048
     Dates: start: 20151002
  11. EMEND [Concomitant]
     Active Substance: APREPITANT
     Indication: PROPHYLAXIS OF NAUSEA AND VOMITING
     Route: 048
     Dates: start: 20151008
  12. AMOXICLE [Concomitant]
     Indication: TONSILLITIS
     Dosage: 1750 MILLIGRAM DAILY;
     Route: 048
     Dates: start: 20151023, end: 20151027
  13. NEUTROGIN [Concomitant]
     Active Substance: LENOGRASTIM
     Indication: NEUTROPENIA
     Dosage: 250 MICROGRAM DAILY;
     Route: 058
     Dates: start: 20151020, end: 20151020
  14. CYCLOPHOSPHAMIDE. [Suspect]
     Active Substance: CYCLOPHOSPHAMIDE
     Indication: TRIPLE NEGATIVE BREAST CANCER
     Dosage: CHEMOTHERAPY SEGMENT 2 (600 MG/M2, 1 IN 3 WEEKS)
     Route: 041
     Dates: start: 20151008
  15. ABT-888 (BLINDED) [Suspect]
     Active Substance: VELIPARIB
     Indication: TRIPLE NEGATIVE BREAST CANCER
     Dosage: CHEMOTHERAPY SEGMENT 1 (2 IN 1 D)
     Route: 048
     Dates: start: 20150707, end: 20151007
  16. DEXAMETHASONE. [Concomitant]
     Active Substance: DEXAMETHASONE
     Indication: PROPHYLAXIS OF NAUSEA AND VOMITING
  17. CEFTAZIDIME. [Concomitant]
     Active Substance: CEFTAZIDIME
     Indication: TONSILLITIS
     Route: 041
     Dates: start: 20151020, end: 20151023
  18. CARBOPLATIN. [Suspect]
     Active Substance: CARBOPLATIN
     Indication: TRIPLE NEGATIVE BREAST CANCER
     Dosage: CHEMOTHERAPY SEGMENT 1 (1 IN 3 WEEKS)
     Route: 042
     Dates: start: 20150707, end: 20150911
  19. ALOXI [Concomitant]
     Active Substance: PALONOSETRON HYDROCHLORIDE
     Indication: PREMEDICATION
     Dosage: WITH CARBOPLATIN AND AC CHEMOTHERAPY
     Route: 040
     Dates: start: 20150707
  20. NEUTROGIN [Concomitant]
     Active Substance: LENOGRASTIM
     Dosage: 250 MICROGRAM DAILY;
     Route: 058
     Dates: start: 20151106, end: 20151106
  21. ISEPACIN [Concomitant]
     Indication: TONSILLITIS
     Dosage: 400 MILLIGRAM DAILY;
     Route: 041
     Dates: start: 20151020, end: 20151022
  22. ANTIS SOLUTION [Concomitant]
     Indication: TONSILLITIS
     Dates: start: 20151020
  23. HEXAMEDIN [Concomitant]
     Indication: PROPHYLAXIS
     Dates: start: 20151028, end: 20151104
  24. PACLITAXEL. [Suspect]
     Active Substance: PACLITAXEL
     Indication: TRIPLE NEGATIVE BREAST CANCER
     Dosage: CHEMOTHERAPY SEGMENT 1 (80 MG/M2, 1 IN 1 WEEK)
     Route: 042
     Dates: start: 20150707, end: 20150924
  25. LANSTON [Concomitant]
     Active Substance: LANSOPRAZOLE
     Indication: ABDOMINAL PAIN UPPER
     Dosage: 15 MILLIGRAM DAILY;
     Route: 048
     Dates: start: 20151106
  26. ANTIS SOLUTION [Concomitant]
     Indication: STOMATITIS
     Route: 048
     Dates: start: 20151021, end: 20151021
  27. DOXORUBICIN [Suspect]
     Active Substance: DOXORUBICIN
     Indication: TRIPLE NEGATIVE BREAST CANCER
     Dosage: CHEMOTHERAPY SEGMENT 2 (60 MG/M2, 1 IN 3 WEEK)
     Route: 040
     Dates: start: 20151008
  28. DEXAMETHASONE. [Concomitant]
     Active Substance: DEXAMETHASONE
     Indication: NEUTROPENIA
  29. EMEND [Concomitant]
     Active Substance: APREPITANT
     Dosage: 80 MILLIGRAM DAILY;
     Route: 048
     Dates: start: 20151009, end: 20151010

REACTIONS (1)
  - Febrile neutropenia [Unknown]

NARRATIVE: CASE EVENT DATE: 20151109
